FAERS Safety Report 10195711 (Version 1)
Quarter: 2014Q2

REPORT INFORMATION
  Report Type: Spontaneous
  Country: CN (occurrence: CN)
  Receive Date: 20140527
  Receipt Date: 20140527
  Transmission Date: 20141212
  Serious: Yes (Other)
  Sender: FDA-Public Use
  Company Number: CN-ASTRAZENECA-2014SE35865

PATIENT
  Age: 17533 Day
  Sex: Male
  Weight: 65 kg

DRUGS (1)
  1. FELODIPINE [Suspect]
     Indication: HYPERTENSION
     Route: 048
     Dates: start: 20130321, end: 20130321

REACTIONS (1)
  - Anaphylactoid reaction [Recovering/Resolving]
